FAERS Safety Report 19912270 (Version 1)
Quarter: 2021Q4

REPORT INFORMATION
  Report Type: Spontaneous
  Country: US (occurrence: US)
  Receive Date: 20211004
  Receipt Date: 20211004
  Transmission Date: 20220303
  Serious: No
  Sender: FDA-Public Use
  Company Number: US-PFIZER INC-202101240956

PATIENT
  Age: 48 Year
  Sex: Female

DRUGS (1)
  1. IBRANCE [Suspect]
     Active Substance: PALBOCICLIB
     Indication: Illness
     Dosage: 125 MG, DAILY
     Route: 048

REACTIONS (2)
  - Diarrhoea [Unknown]
  - Nausea [Unknown]

NARRATIVE: CASE EVENT DATE: 20210901
